FAERS Safety Report 8286749-1 (Version None)
Quarter: 2012Q2

REPORT INFORMATION
  Report Type: 
  Country: None (occurrence: None)
  Receive Date: 20120416
  Receipt Date: 20120410
  Transmission Date: 20120825
  Serious: Yes (Hospitalization)
  Sender: FDA-Public Use
  Company Number: FR-SANOFI-AVENTIS-2012SA024733

PATIENT
  Age: 65 Year
  Sex: Male

DRUGS (1)
  1. RIFAMPIN AND ISONIAZID [Suspect]
     Indication: PROPHYLAXIS
     Route: 065
     Dates: start: 20111128, end: 20120210

REACTIONS (2)
  - ERYTHRODERMIC PSORIASIS [None]
  - CONDITION AGGRAVATED [None]
